FAERS Safety Report 8601288-3 (Version None)
Quarter: 2012Q3

REPORT INFORMATION
  Report Type: 
  Country: None (occurrence: None)
  Receive Date: 20120817
  Receipt Date: 20120814
  Transmission Date: 20120928
  Serious: Yes (Death)
  Sender: FDA-Public Use
  Company Number: US-CELGENEUS-163-20785-12070658

PATIENT
  Sex: Male

DRUGS (3)
  1. THALOMID [Suspect]
     Dosage: 450 MILLIGRAM
     Route: 048
     Dates: start: 20100401
  2. THALOMID [Suspect]
     Dosage: 150 MILLIGRAM
     Route: 048
     Dates: start: 20100201
  3. THALOMID [Suspect]
     Dosage: 200 MILLIGRAM
     Route: 048
     Dates: start: 20100301

REACTIONS (1)
  - BRAIN NEOPLASM [None]
